FAERS Safety Report 9697982 (Version 2)
Quarter: 2013Q4

REPORT INFORMATION
  Report Type: Spontaneous
  Country: US (occurrence: US)
  Receive Date: 20131120
  Receipt Date: 20131122
  Transmission Date: 20140711
  Serious: Yes (Life-Threatening, Other)
  Sender: FDA-Public Use
  Company Number: US-009507513-1311USA006862

PATIENT
  Sex: Female

DRUGS (1)
  1. NUVARING [Suspect]
     Dosage: 0.15/.12, 1 RING, UNK
     Route: 067
     Dates: start: 20131114, end: 20131114

REACTIONS (1)
  - Anaphylactic reaction [Recovered/Resolved]
